FAERS Safety Report 19929529 (Version 6)
Quarter: 2023Q4

REPORT INFORMATION
  Report Type: Report from Study
  Country: DE (occurrence: DE)
  Receive Date: 20211007
  Receipt Date: 20231211
  Transmission Date: 20240110
  Serious: Yes (Hospitalization)
  Sender: FDA-Public Use
  Company Number: DE-002147023-NVSC2021DE052455

PATIENT
  Sex: Female
  Weight: 78 kg

DRUGS (9)
  1. LETROZOLE [Suspect]
     Active Substance: LETROZOLE
     Indication: Breast cancer metastatic
     Dosage: 2.5 MG, QD (DAILY DOSE)
     Route: 048
     Dates: start: 20200314, end: 20230928
  2. KISQALI [Suspect]
     Active Substance: RIBOCICLIB
     Indication: Breast cancer metastatic
     Dosage: 600 MG, QD (DAILY DOSE) (SCHEMA 21 DAYS INTAKE, 7 DAYS PAUSE)
     Route: 048
     Dates: start: 20200314, end: 20200828
  3. KISQALI [Suspect]
     Active Substance: RIBOCICLIB
     Dosage: UNK
     Route: 065
     Dates: start: 20210302
  4. KISQALI [Suspect]
     Active Substance: RIBOCICLIB
     Dosage: 400 MG, QD (DAILY DOSE) (SCHEMA 21 DAYS INTAKE, 7 DAYS PAUSE)
     Route: 048
     Dates: start: 20200829, end: 20201223
  5. KISQALI [Suspect]
     Active Substance: RIBOCICLIB
     Dosage: 400 MG (SCHEME 21 DAYS INTAKE, 7 DAYS PAUSE)
     Route: 048
     Dates: start: 20211020, end: 20211116
  6. KISQALI [Suspect]
     Active Substance: RIBOCICLIB
     Dosage: 200 MG (SCHEME 21 DAYS INTAKE, 7 DAYS PAUSE)
     Route: 048
     Dates: start: 20211117, end: 20220701
  7. KISQALI [Suspect]
     Active Substance: RIBOCICLIB
     Dosage: 400 MILLIGRAM, QD, (DAILY DOSE) (SCHEMA 21 DAYS INTAKE, 7 DAYS PAUSE)
     Route: 048
     Dates: start: 20200829, end: 20211012
  8. KISQALI [Suspect]
     Active Substance: RIBOCICLIB
     Dosage: 200 MILLIGRAM, (SCHEME 21 DAYS INTAKE, 7 DAYS PAUSE)
     Route: 048
     Dates: start: 20220708, end: 20221118
  9. KISQALI [Suspect]
     Active Substance: RIBOCICLIB
     Dosage: 200 MILLIGRAM, (SCHEME 21 DAYS INTAKE, 7 DAYS PAUSE)
     Route: 048
     Dates: start: 20221224, end: 20230922

REACTIONS (16)
  - COVID-19 [Recovered/Resolved]
  - Illness [Unknown]
  - Sleep disorder [Unknown]
  - Full blood count abnormal [Unknown]
  - Nausea [Unknown]
  - Dyspnoea [Unknown]
  - Appetite disorder [Unknown]
  - Asthenia [Recovered/Resolved]
  - Vomiting [Unknown]
  - Pain [Unknown]
  - Diarrhoea [Unknown]
  - Pyrexia [Unknown]
  - Burning sensation [Unknown]
  - Arthralgia [Unknown]
  - Alopecia [Recovered/Resolved]
  - Dizziness [Unknown]

NARRATIVE: CASE EVENT DATE: 20201220
